FAERS Safety Report 15900622 (Version 1)
Quarter: 2019Q1

REPORT INFORMATION
  Report Type: Spontaneous
  Country: US (occurrence: US)
  Receive Date: 20190131
  Receipt Date: 20190131
  Transmission Date: 20190417
  Serious: Yes (Hospitalization)
  Sender: FDA-Public Use
  Company Number: None

PATIENT
  Age: 87 Year
  Sex: Female
  Weight: 23.64 kg

DRUGS (5)
  1. RITUXIMAB. [Suspect]
     Active Substance: RITUXIMAB
     Indication: IMMUNE THROMBOCYTOPENIC PURPURA
     Dosage: ?          OTHER FREQUENCY:ONCE;?
     Route: 041
     Dates: start: 20181129, end: 20181129
  2. ACETAMINOPHEN. [Concomitant]
     Active Substance: ACETAMINOPHEN
     Dates: start: 20181129, end: 20181129
  3. DIPHENHYDRAMINE. [Concomitant]
     Active Substance: DIPHENHYDRAMINE
     Dates: start: 20181129, end: 20181129
  4. SODIUM CHLORIDE. [Concomitant]
     Active Substance: SODIUM CHLORIDE
     Dates: start: 20181129, end: 20181129
  5. ROMIPLOSTIM (NPLATE) [Concomitant]

REACTIONS (8)
  - Upper respiratory tract infection [None]
  - Hypoalbuminaemia [None]
  - Pleural effusion [None]
  - Oedema [None]
  - Generalised oedema [None]
  - Malaise [None]
  - Capillary leak syndrome [None]
  - Ascites [None]

NARRATIVE: CASE EVENT DATE: 20181217
